FAERS Safety Report 24782076 (Version 1)
Quarter: 2024Q4

REPORT INFORMATION
  Report Type: Spontaneous
  Country: US (occurrence: None)
  Receive Date: 20241226
  Receipt Date: 20241226
  Transmission Date: 20250115
  Serious: Yes (Other)
  Sender: Public
  Company Number: None

PATIENT
  Age: 59 Year
  Sex: Female
  Weight: 51.3 kg

DRUGS (1)
  1. EMGALITY [Suspect]
     Active Substance: GALCANEZUMAB-GNLM
     Indication: Migraine
     Dates: start: 20230131

REACTIONS (6)
  - Hypertension [None]
  - Migraine [None]
  - Headache [None]
  - Anxiety [None]
  - Product availability issue [None]
  - Withdrawal syndrome [None]

NARRATIVE: CASE EVENT DATE: 20241202
